FAERS Safety Report 8075259-2 (Version None)
Quarter: 2012Q1

REPORT INFORMATION
  Report Type: 
  Country: None (occurrence: None)
  Receive Date: 20120127
  Receipt Date: 20120123
  Transmission Date: 20120608
  Serious: Yes (Death)
  Sender: FDA-Public Use
  Company Number: US-CELGENEUS-163-21880-12012397

PATIENT
  Sex: Female

DRUGS (12)
  1. REVLIMID [Suspect]
     Dosage: 25 MILLIGRAM
     Route: 048
     Dates: start: 20111201
  2. SPIRONOLACTONE [Concomitant]
     Dosage: 25 MILLIGRAM
     Route: 065
  3. DECADRON [Concomitant]
     Dosage: .5 MILLIGRAM
     Route: 065
  4. LOVENOX [Concomitant]
     Dosage: 300/3ML
     Route: 065
  5. LEXAPRO [Concomitant]
     Dosage: 10 MILLIGRAM
     Route: 065
  6. REVLIMID [Suspect]
     Dosage: 15 MILLIGRAM
     Route: 048
     Dates: start: 20110820
  7. LORCET-HD [Concomitant]
     Dosage: 10/650
     Route: 065
  8. ACETAMINOPHEN [Concomitant]
     Dosage: 650 MILLIGRAM
     Route: 065
  9. LOMOTIL [Concomitant]
     Dosage: 2.5/5
     Route: 065
  10. NEURONTIN [Concomitant]
     Dosage: 400 MILLIGRAM
     Route: 065
  11. VITAMIN B COMPLEX CAP [Concomitant]
     Route: 065
  12. WELCHOL [Concomitant]
     Dosage: 625 MILLIGRAM
     Route: 065

REACTIONS (1)
  - DEATH [None]
